FAERS Safety Report 7478365-6 (Version None)
Quarter: 2011Q2

REPORT INFORMATION
  Report Type: 
  Country: None (occurrence: None)
  Receive Date: 20110513
  Receipt Date: 20091009
  Transmission Date: 20111010
  Serious: No
  Sender: FDA-Public Use
  Company Number: US-PFIZER INC-2009269048

PATIENT
  Sex: Female
  Weight: 81.633 kg

DRUGS (6)
  1. LEFLUNOMIDE [Concomitant]
     Dosage: 20 MG, 1X/DAY
  2. METFORMIN [Concomitant]
     Dosage: 500 MG, 2X/DAY
  3. ARTHROTEC [Concomitant]
     Dosage: UNK
  4. HYDROCHLOROTHIAZIDE [Concomitant]
     Indication: HYPERTENSION
     Dosage: 25 MG, 1X/DAY
  5. LISINOPRIL [Concomitant]
     Dosage: 40 MG, 1X/DAY
  6. SULFASALAZINE [Suspect]
     Indication: RHEUMATOID ARTHRITIS
     Dosage: 500 MG, 2X/DAY
     Route: 048
     Dates: start: 20090908

REACTIONS (1)
  - ARTHRITIS [None]
